FAERS Safety Report 17578222 (Version 1)
Quarter: 2020Q1

REPORT INFORMATION
  Report Type: Spontaneous
  Country: IT (occurrence: IT)
  Receive Date: 20200324
  Receipt Date: 20200324
  Transmission Date: 20200409
  Serious: Yes (Other)
  Sender: FDA-Public Use
  Company Number: IT-AMGEN-ITASP2020040724

PATIENT
  Age: 45 Year
  Sex: Female
  Weight: 55 kg

DRUGS (1)
  1. AMGEVITA [Suspect]
     Active Substance: ADALIMUMAB
     Indication: RHEUMATOID ARTHRITIS
     Dosage: 40 MILLIGRAM, CYCLICAL, 20 MG SOLUTION FOR INJECTION
     Route: 058
     Dates: start: 20190601, end: 20200201

REACTIONS (5)
  - Psoriasis [Unknown]
  - Product substitution issue [Unknown]
  - Drug ineffective [Unknown]
  - Arthralgia [Unknown]
  - Synovitis [Unknown]

NARRATIVE: CASE EVENT DATE: 20200201
